FAERS Safety Report 6833682-5 (Version None)
Quarter: 2010Q3

REPORT INFORMATION
  Report Type: 
  Country: None (occurrence: None)
  Receive Date: 20100712
  Receipt Date: 20100701
  Transmission Date: 20110219
  Serious: Yes (Other)
  Sender: FDA-Public Use
  Company Number: NO-MERCK-1007NOR00008

PATIENT
  Age: 55 Year
  Sex: Male

DRUGS (2)
  1. ZOCOR [Suspect]
     Route: 048
  2. ESCITALOPRAM [Suspect]
     Route: 065
     Dates: start: 20091201, end: 20100301

REACTIONS (1)
  - EXTRASYSTOLES [None]
